FAERS Safety Report 9895119 (Version 2)
Quarter: 2014Q1

REPORT INFORMATION
  Report Type: Spontaneous
  Country: US (occurrence: US)
  Receive Date: 20140213
  Receipt Date: 20140318
  Transmission Date: 20141002
  Serious: Yes (Death)
  Sender: FDA-Public Use
  Company Number: US-ACTELION-A-NJ2014-94529

PATIENT
  Age: 79 Year
  Sex: Male

DRUGS (2)
  1. OPSUMIT [Suspect]
     Indication: PULMONARY ARTERIAL HYPERTENSION
     Dosage: 10 MG, QD
     Route: 048
     Dates: end: 20140119
  2. SILDENAFIL [Concomitant]

REACTIONS (4)
  - Pneumonia [Fatal]
  - Sepsis [Fatal]
  - Haemoptysis [Fatal]
  - Acute respiratory distress syndrome [Fatal]
